FAERS Safety Report 9315282 (Version 3)
Quarter: 2013Q4

REPORT INFORMATION
  Report Type: Spontaneous
  Country: GB (occurrence: GB)
  Receive Date: 20130529
  Receipt Date: 20131107
  Transmission Date: 20140711
  Serious: Yes (Hospitalization)
  Sender: FDA-Public Use
  Company Number: GB-UCBSA-086621

PATIENT
  Age: 58 Year
  Sex: Male
  Weight: 94 kg

DRUGS (5)
  1. ACETAMINOPHEN/CODEINE [Suspect]
     Indication: PSORIATIC ARTHROPATHY
     Dosage: 240 MG/G
     Route: 048
  2. ARCOXIA [Suspect]
     Indication: PSORIATIC ARTHROPATHY
     Route: 048
  3. GOLIMUMAB [Suspect]
     Indication: PSORIATIC ARTHROPATHY
     Dosage: LIQUID
     Route: 058
     Dates: start: 201207, end: 2012
  4. GOLIMUMAB [Suspect]
     Indication: PSORIATIC ARTHROPATHY
     Dosage: DOSE:50 MG
     Route: 058
     Dates: start: 20120824
  5. LANSOPRAZOLE [Suspect]
     Indication: GASTROOESOPHAGEAL REFLUX DISEASE
     Route: 048

REACTIONS (1)
  - Allodynia [Recovering/Resolving]
